FAERS Safety Report 18179690 (Version 1)
Quarter: 2020Q3

REPORT INFORMATION
  Report Type: Spontaneous
  Country: US (occurrence: US)
  Receive Date: 20200820
  Receipt Date: 20200820
  Transmission Date: 20201103
  Serious: No
  Sender: FDA-Public Use
  Company Number: US-LUNDBECK-DKLU3019502

PATIENT
  Age: 8 Month
  Sex: Female

DRUGS (3)
  1. SABRIL [Suspect]
     Active Substance: VIGABATRIN
     Dosage: DAY 7?30
     Route: 048
     Dates: end: 20200727
  2. SABRIL [Suspect]
     Active Substance: VIGABATRIN
     Indication: INFANTILE SPASMS
     Dosage: DAY 1?3
     Route: 048
     Dates: start: 20200529
  3. SABRIL [Suspect]
     Active Substance: VIGABATRIN
     Dosage: DAY 3?6
     Route: 048

REACTIONS (1)
  - Drug ineffective [Unknown]
